FAERS Safety Report 4932685-5 (Version None)
Quarter: 2006Q1

REPORT INFORMATION
  Report Type: 
  Country: None (occurrence: None)
  Receive Date: 20060301
  Receipt Date: 20060216
  Transmission Date: 20060701
  Serious: Yes (Other)
  Sender: FDA-Public Use
  Company Number: 2006024519

PATIENT
  Age: 50 Year
  Sex: Male

DRUGS (2)
  1. GEODON [Suspect]
     Indication: SCHIZOPHRENIA
  2. ZUCLOPENTHIXOL                       (ZUCLOPENTHIXOL) [Concomitant]

REACTIONS (1)
  - ADVERSE EVENT [None]
